FAERS Safety Report 7770355-9 (Version None)
Quarter: 2011Q3

REPORT INFORMATION
  Report Type: 
  Country: None (occurrence: None)
  Receive Date: 20110922
  Receipt Date: 20100827
  Transmission Date: 20111222
  Serious: No
  Sender: FDA-Public Use
  Company Number: US-ASTRAZENECA-2007UW27740

PATIENT
  Age: 425 Month
  Sex: Male
  Weight: 103.9 kg

DRUGS (7)
  1. SEROQUEL [Suspect]
     Indication: ANXIETY
     Route: 048
     Dates: start: 20060201, end: 20070419
  2. SEROQUEL [Suspect]
     Route: 048
     Dates: start: 20060627, end: 20070419
  3. SEROQUEL [Suspect]
     Route: 048
     Dates: start: 20060627, end: 20070419
  4. RISPERDAL [Concomitant]
     Indication: DEPRESSION
     Dates: start: 20060101, end: 20071201
  5. SEROQUEL [Suspect]
     Indication: DEPRESSION
     Route: 048
     Dates: start: 20060201, end: 20070419
  6. RISPERDAL [Concomitant]
     Indication: ANXIETY
     Dates: start: 20060101, end: 20071201
  7. PAXIL [Concomitant]
     Dates: start: 20060101, end: 20070101

REACTIONS (6)
  - DIABETIC COMPLICATION [None]
  - BLOOD CHOLESTEROL INCREASED [None]
  - DIABETES MELLITUS [None]
  - TYPE 2 DIABETES MELLITUS [None]
  - HYPERLIPIDAEMIA [None]
  - OBESITY [None]
